FAERS Safety Report 16795598 (Version 1)
Quarter: 2019Q3

REPORT INFORMATION
  Report Type: Spontaneous
  Country: BR (occurrence: BR)
  Receive Date: 20190911
  Receipt Date: 20190911
  Transmission Date: 20191005
  Serious: Yes (Other)
  Sender: FDA-Public Use
  Company Number: BR-AMERICAN REGENT INC-2019001981

PATIENT
  Sex: Female
  Weight: 72 kg

DRUGS (2)
  1. KETAMINE [Concomitant]
     Active Substance: KETAMINE
     Indication: THERMAL BURN
     Dosage: UNK
     Route: 065
     Dates: start: 2019
  2. FERINJECT [Suspect]
     Active Substance: FERRIC CARBOXYMALTOSE
     Indication: ANAEMIA
     Dosage: TOTAL OF 1500 MILLIGRAM (DIVIDED IN 2 ADMINISTRATIONS IN SUBSEQUENT WEEKS)
     Route: 042
     Dates: start: 201904, end: 201904

REACTIONS (2)
  - Serum ferritin increased [Not Recovered/Not Resolved]
  - Fatigue [Not Recovered/Not Resolved]

NARRATIVE: CASE EVENT DATE: 2019
